FAERS Safety Report 9879282 (Version 1)
Quarter: 2014Q1

REPORT INFORMATION
  Report Type: Spontaneous
  Country: CH (occurrence: CH)
  Receive Date: 20140206
  Receipt Date: 20140206
  Transmission Date: 20141002
  Serious: Yes (Hospitalization)
  Sender: FDA-Public Use
  Company Number: CH-ASTRAZENECA-2014SE07160

PATIENT
  Age: 61 Year
  Sex: Female

DRUGS (14)
  1. BRILIQUE [Suspect]
     Indication: ACUTE MYOCARDIAL INFARCTION
     Route: 048
     Dates: start: 20140103, end: 201401
  2. KLACID I.V.INFUSIONSPRAEPARAT [Interacting]
     Indication: POSTPARTUM SEPSIS
     Route: 042
     Dates: start: 20131230, end: 20140106
  3. ASPIRIN [Interacting]
     Indication: ACUTE MYOCARDIAL INFARCTION
     Route: 048
     Dates: start: 20140103
  4. CIPRALEX [Interacting]
     Indication: ANXIETY DISORDER
     Route: 048
  5. FRAGMIN [Interacting]
     Indication: THROMBOSIS PROPHYLAXIS
     Route: 058
     Dates: start: 20140103
  6. SORTIS [Concomitant]
  7. SERETIDE [Concomitant]
  8. VENTOLIN [Concomitant]
  9. SPIRIVA [Concomitant]
  10. LYRICA [Concomitant]
  11. TRUXAL [Concomitant]
  12. AMARYL [Concomitant]
  13. TAZOBAC [Concomitant]
  14. TAMIFLU [Concomitant]

REACTIONS (4)
  - Drug interaction [Unknown]
  - Haemoglobin decreased [Unknown]
  - Blood pressure decreased [Recovered/Resolved]
  - Application site haemorrhage [Recovered/Resolved]
